FAERS Safety Report 9800836 (Version 2)
Quarter: 2014Q1

REPORT INFORMATION
  Report Type: Spontaneous
  Country: US (occurrence: US)
  Receive Date: 20140107
  Receipt Date: 20140117
  Transmission Date: 20141002
  Serious: Yes (Other)
  Sender: FDA-Public Use
  Company Number: US-JNJFOC-20140100599

PATIENT
  Age: 73 Year
  Sex: Male
  Weight: 68.04 kg

DRUGS (11)
  1. XARELTO [Suspect]
     Indication: CEREBROVASCULAR ACCIDENT PROPHYLAXIS
     Route: 048
     Dates: start: 20131204, end: 20131230
  2. XARELTO [Suspect]
     Indication: ATRIAL FIBRILLATION
     Route: 048
     Dates: start: 20131204, end: 20131230
  3. AMIODARONE [Concomitant]
     Route: 048
     Dates: start: 201312, end: 201312
  4. AMIODARONE [Concomitant]
     Route: 048
  5. METOPROLOL [Concomitant]
     Route: 048
     Dates: start: 201312
  6. METOPROLOL [Concomitant]
     Route: 048
     Dates: start: 201312, end: 201312
  7. ASPIRIN [Concomitant]
     Route: 048
  8. LISINOPRIL [Concomitant]
     Route: 048
     Dates: start: 201304, end: 201312
  9. LOVASTATIN [Concomitant]
     Indication: HYPERTENSION
     Route: 048
     Dates: end: 201312
  10. FUROSEMIDE [Concomitant]
     Route: 048
     Dates: start: 201312
  11. PRAVASTATIN [Concomitant]
     Indication: HYPERTENSION
     Route: 048
     Dates: start: 201312

REACTIONS (4)
  - Oedema peripheral [Recovering/Resolving]
  - Fatigue [Recovered/Resolved]
  - Rash generalised [Recovering/Resolving]
  - Scab [Recovering/Resolving]
